FAERS Safety Report 13350104 (Version 1)
Quarter: 2017Q1

REPORT INFORMATION
  Report Type: Spontaneous
  Country: US (occurrence: US)
  Receive Date: 20170317
  Receipt Date: 20170317
  Transmission Date: 20170429
  Serious: Yes (Hospitalization)
  Sender: FDA-Public Use
  Company Number: None

PATIENT
  Age: 53 Year
  Sex: Male

DRUGS (1)
  1. REVLIMID [Suspect]
     Active Substance: LENALIDOMIDE
     Indication: PLASMA CELL MYELOMA
     Route: 048
     Dates: start: 20151114

REACTIONS (6)
  - Sepsis [None]
  - Neutropenia [None]
  - Lactic acidosis [None]
  - Clostridium difficile infection [None]
  - Urinary incontinence [None]
  - Staphylococcal infection [None]

NARRATIVE: CASE EVENT DATE: 20151111
